FAERS Safety Report 8716297 (Version 2)
Quarter: 2013Q4

REPORT INFORMATION
  Report Type: Spontaneous
  Country: GB (occurrence: GB)
  Receive Date: 20120810
  Receipt Date: 20131031
  Transmission Date: 20140711
  Serious: Yes (Other)
  Sender: FDA-Public Use
  Company Number: GB-009507513-1208GBR002483

PATIENT
  Age: 64 Year
  Sex: Male
  Weight: 85 kg

DRUGS (2)
  1. CLARITYN ALLERGY [Suspect]
     Indication: SEASONAL ALLERGY
     Dosage: 10 MG, UNK
     Route: 048
     Dates: start: 20120403, end: 20120624
  2. BECONASE [Concomitant]

REACTIONS (4)
  - Abdominal rigidity [Recovered/Resolved]
  - Dysuria [Recovered/Resolved]
  - Renal pain [Recovered/Resolved]
  - Nocturia [Recovered/Resolved]
